FAERS Safety Report 8027885-4 (Version None)
Quarter: 2012Q1

REPORT INFORMATION
  Report Type: 
  Country: None (occurrence: None)
  Receive Date: 20120106
  Receipt Date: 20120103
  Transmission Date: 20120608
  Serious: No
  Sender: FDA-Public Use
  Company Number: US-PFIZER INC-2011314425

PATIENT
  Age: 85 Year
  Sex: Female

DRUGS (3)
  1. LEVOTHROID [Concomitant]
     Dosage: UNK
  2. LIPITOR [Concomitant]
     Dosage: 10 MG, UNK
  3. PREMPRO [Suspect]
     Indication: MENOPAUSE
     Dosage: 0.625/2.5 MG, 1X/DAY
     Route: 048

REACTIONS (4)
  - ASTHENIA [None]
  - DRUG EFFECT DECREASED [None]
  - LETHARGY [None]
  - FATIGUE [None]
